FAERS Safety Report 5401342-3 (Version None)
Quarter: 2007Q3

REPORT INFORMATION
  Report Type: 
  Country: None (occurrence: None)
  Receive Date: 20070731
  Receipt Date: 20070726
  Transmission Date: 20080115
  Serious: Yes (Death, Hospitalization)
  Sender: FDA-Public Use
  Company Number: A0662554A

PATIENT
  Age: 52 Year
  Sex: Female

DRUGS (1)
  1. LAPATINIB [Suspect]
     Dosage: 1500MG PER DAY
     Route: 048

REACTIONS (5)
  - ANOREXIA [None]
  - ASTHENIA [None]
  - DISEASE PROGRESSION [None]
  - GENERAL PHYSICAL HEALTH DETERIORATION [None]
  - NAUSEA [None]
